FAERS Safety Report 6394421-8 (Version None)
Quarter: 2009Q4

REPORT INFORMATION
  Report Type: 
  Country: None (occurrence: None)
  Receive Date: 20091006
  Receipt Date: 20090914
  Transmission Date: 20100525
  Serious: No
  Sender: FDA-Public Use
  Company Number: 2009010390

PATIENT

DRUGS (2)
  1. FENTORA [Suspect]
     Dosage: 1-2 TABLETS Q 4 PRN), BU
     Route: 002
  2. OXYCONTIN [Concomitant]

REACTIONS (1)
  - DRUG PRESCRIBING ERROR [None]
